FAERS Safety Report 13557286 (Version 2)
Quarter: 2017Q3

REPORT INFORMATION
  Report Type: Spontaneous
  Country: US (occurrence: US)
  Receive Date: 20170518
  Receipt Date: 20170809
  Transmission Date: 20171127
  Serious: Yes (Life-Threatening, Other)
  Sender: FDA-Public Use
  Company Number: US-PFIZER INC-2017216950

PATIENT
  Age: 15 Month
  Sex: Female

DRUGS (3)
  1. VANCOMYCIN HCL [Suspect]
     Active Substance: VANCOMYCIN HYDROCHLORIDE
     Indication: THYMUS ABSCESS
     Dosage: PERIPHERALLY INSERTED CENTRAL CATHETER
     Route: 042
  2. LINEZOLID. [Suspect]
     Active Substance: LINEZOLID
     Indication: THYMUS ABSCESS
     Dosage: UNK
     Route: 048
  3. CEFTRIAXONE SODIUM. [Suspect]
     Active Substance: CEFTRIAXONE SODIUM
     Indication: THYMUS ABSCESS
     Dosage: UNK, PERIPHERALLY INSERTED CENTRAL CATHETER
     Route: 042

REACTIONS (2)
  - Neutropenia [Recovered/Resolved]
  - Bone marrow failure [Recovered/Resolved]
